FAERS Safety Report 5567491-4 (Version None)
Quarter: 2007Q4

REPORT INFORMATION
  Report Type: 
  Country: None (occurrence: None)
  Receive Date: 20071219
  Receipt Date: 20071207
  Transmission Date: 20080405
  Serious: Yes (Other)
  Sender: FDA-Public Use
  Company Number: US-PFIZER INC-2007104280

PATIENT
  Sex: Male
  Weight: 109.09 kg

DRUGS (14)
  1. CHANTIX [Suspect]
     Indication: SMOKING CESSATION THERAPY
  2. PLAVIX [Concomitant]
  3. DIOVAN [Concomitant]
  4. ISOSORBIDE DINITRATE [Concomitant]
  5. METOPROLOL SUCCINATE [Concomitant]
  6. TORSEMIDE [Concomitant]
  7. LIPITOR [Concomitant]
  8. KLOR-CON [Concomitant]
  9. ACETYLSALICYLIC ACID SRT [Concomitant]
  10. DIGITEK [Concomitant]
  11. NEXIUM [Concomitant]
  12. AMITRIPTLINE HCL [Concomitant]
  13. REQUIP [Concomitant]
  14. VICODIN [Concomitant]

REACTIONS (2)
  - PIGMENTATION DISORDER [None]
  - TONGUE OEDEMA [None]
